FAERS Safety Report 17645323 (Version 2)
Quarter: 2020Q2

REPORT INFORMATION
  Report Type: Spontaneous
  Country: US (occurrence: US)
  Receive Date: 20200408
  Receipt Date: 20200519
  Transmission Date: 20200713
  Serious: Yes (Other)
  Sender: FDA-Public Use
  Company Number: US-ROCHE-2575138

PATIENT
  Age: 74 Year
  Sex: Male

DRUGS (1)
  1. ALECENSA [Suspect]
     Active Substance: ALECTINIB HYDROCHLORIDE
     Indication: LUNG NEOPLASM MALIGNANT
     Route: 048
     Dates: start: 202001

REACTIONS (6)
  - Pulmonary oedema [Unknown]
  - Erythema [Unknown]
  - Dyspnoea [Unknown]
  - Peripheral swelling [Unknown]
  - Skin exfoliation [Unknown]
  - Rash pruritic [Unknown]

NARRATIVE: CASE EVENT DATE: 202003
